FAERS Safety Report 4633569-2 (Version None)
Quarter: 2005Q2

REPORT INFORMATION
  Report Type: 
  Country: None (occurrence: None)
  Receive Date: 20050411
  Receipt Date: 20050411
  Transmission Date: 20051028
  Serious: No
  Sender: FDA-Public Use
  Company Number: None

PATIENT
  Age: 79 Year
  Sex: Female
  Weight: 73.4827 kg

DRUGS (10)
  1. CRESTOR [Suspect]
     Indication: HYPERCHOLESTEROLAEMIA
     Dosage: 10 MG  DAILY  ORAL
     Route: 048
     Dates: start: 20050325, end: 20050401
  2. LOPID [Concomitant]
  3. LASIX [Concomitant]
  4. METFORMIN [Concomitant]
  5. IRON [Concomitant]
  6. PEPCID [Concomitant]
  7. AVANDIA [Concomitant]
  8. DILTIAZEM [Concomitant]
  9. LISINOPRIL [Concomitant]
  10. COUMADIN [Concomitant]

REACTIONS (1)
  - BLOOD CREATININE INCREASED [None]
